FAERS Safety Report 9842847 (Version 1)
Quarter: 2014Q1

REPORT INFORMATION
  Report Type: Spontaneous
  Country: US (occurrence: US)
  Receive Date: 20140124
  Receipt Date: 20140124
  Transmission Date: 20141002
  Serious: No
  Sender: FDA-Public Use
  Company Number: US-PFIZER INC-2014018472

PATIENT
  Age: 60 Year
  Sex: Female
  Weight: 90.7 kg

DRUGS (2)
  1. NEURONTIN [Suspect]
     Indication: DIABETIC NEUROPATHY
     Dosage: 200 MG, 3X/DAY
  2. EFFEXOR-XR [Concomitant]
     Indication: DEPRESSION
     Dosage: 150 MG, 1X/DAY

REACTIONS (1)
  - Off label use [Unknown]
